FAERS Safety Report 7211153-4 (Version None)
Quarter: 2011Q1

REPORT INFORMATION
  Report Type: 
  Country: None (occurrence: None)
  Receive Date: 20110105
  Receipt Date: 20101227
  Transmission Date: 20110831
  Serious: Yes (Hospitalization)
  Sender: FDA-Public Use
  Company Number: US-ABBOTT-10P-163-0694161-00

PATIENT
  Sex: Male
  Weight: 120.31 kg

DRUGS (9)
  1. ASPIRIN [Concomitant]
     Indication: PRODUCT USED FOR UNKNOWN INDICATION
     Route: 048
  2. FISH OIL [Concomitant]
     Indication: PRODUCT USED FOR UNKNOWN INDICATION
     Dosage: SIX TABS.
  3. LIPITOR [Concomitant]
     Indication: PRODUCT USED FOR UNKNOWN INDICATION
     Route: 048
  4. SYNTHROID [Concomitant]
     Indication: PRODUCT USED FOR UNKNOWN INDICATION
     Route: 048
  5. NIASPAN [Suspect]
     Indication: BLOOD TRIGLYCERIDES INCREASED
     Route: 048
     Dates: start: 20090101, end: 20101101
  6. NIASPAN [Suspect]
     Dosage: TITRATED UP 500MG/WK
     Route: 048
     Dates: start: 20101201, end: 20101201
  7. VITAMIN D [Concomitant]
     Indication: VITAMIN SUPPLEMENTATION
     Route: 048
  8. NIASPAN [Suspect]
     Indication: HIGH DENSITY LIPOPROTEIN DECREASED
     Dosage: TITRATED UP FROM 500 MG TO 2000 MG
     Dates: start: 20080101, end: 20090101
  9. NIASPAN [Suspect]
     Route: 048
     Dates: start: 20101113, end: 20101201

REACTIONS (9)
  - EXTRASYSTOLES [None]
  - NAUSEA [None]
  - VENTRICULAR EXTRASYSTOLES [None]
  - DIZZINESS [None]
  - COLD SWEAT [None]
  - FLUSHING [None]
  - POOR QUALITY SLEEP [None]
  - PALPITATIONS [None]
  - DRUG INEFFECTIVE [None]
